FAERS Safety Report 8521960-3 (Version None)
Quarter: 2012Q3

REPORT INFORMATION
  Report Type: 
  Country: None (occurrence: None)
  Receive Date: 20120719
  Receipt Date: 20120621
  Transmission Date: 20120928
  Serious: Yes (Other)
  Sender: FDA-Public Use
  Company Number: US-BRISTOL-MYERS SQUIBB COMPANY-16702714

PATIENT
  Age: 61 Year
  Sex: Male
  Weight: 92 kg

DRUGS (3)
  1. TRIAMCINOLONE [Concomitant]
     Dosage: TOPICAL
     Route: 061
  2. YERVOY [Suspect]
     Indication: MALIGNANT MELANOMA
     Dosage: 278 MG, LOT# 918609:JUN 2014; LOT# 918360 EXP DATE: JUL 2014
     Route: 042
     Dates: start: 20120531
  3. DOXYCYCLINE [Concomitant]

REACTIONS (1)
  - ANAPHYLACTIC REACTION [None]
